FAERS Safety Report 4409428-7 (Version None)
Quarter: 2004Q3

REPORT INFORMATION
  Report Type: 
  Country: None (occurrence: None)
  Receive Date: 20040723
  Receipt Date: 20040714
  Transmission Date: 20050211
  Serious: Yes (Hospitalization)
  Sender: FDA-Public Use
  Company Number: K200401046

PATIENT
  Age: 34 Year
  Sex: Female

DRUGS (1)
  1. NORDETTE-21 [Suspect]
     Dosage: 1 TABLET, QD, ORAL
     Route: 048
     Dates: start: 19860101, end: 20040501

REACTIONS (2)
  - HYPERTENSION [None]
  - LOSS OF CONSCIOUSNESS [None]
